FAERS Safety Report 5224847-7 (Version None)
Quarter: 2007Q1

REPORT INFORMATION
  Report Type: 
  Country: None (occurrence: None)
  Receive Date: 20070131
  Receipt Date: 20070122
  Transmission Date: 20070707
  Serious: Yes (Hospitalization)
  Sender: FDA-Public Use
  Company Number: JP-BAYER-200611189BYL

PATIENT
  Age: 14 Year
  Sex: Female
  Weight: 41 kg

DRUGS (6)
  1. AVELOX [Suspect]
     Indication: MYCOPLASMA INFECTION
     Dosage: TOTAL DAILY DOSE: 400 MG  UNIT DOSE: 400 MG
     Route: 048
     Dates: start: 20061101, end: 20061101
  2. VENEN [Concomitant]
     Indication: RHINORRHOEA
     Dosage: TOTAL DAILY DOSE: 6 MG  UNIT DOSE: 1 MG
     Route: 048
     Dates: start: 20061028, end: 20061101
  3. IRZAIM [Concomitant]
     Indication: BRONCHITIS
     Dosage: TOTAL DAILY DOSE: 30 MG
     Route: 048
     Dates: start: 20061028, end: 20061101
  4. HUSCODE [Concomitant]
     Indication: BRONCHITIS
     Route: 048
     Dates: start: 20061028, end: 20061101
  5. TULOBUTEROL [Concomitant]
     Indication: BRONCHITIS
     Route: 062
     Dates: start: 20061028, end: 20061101
  6. ZITHROMAC [Concomitant]
     Indication: BRONCHITIS
     Route: 048
     Dates: start: 20061028, end: 20061031

REACTIONS (12)
  - ANAPHYLACTIC SHOCK [None]
  - ARRHYTHMIA [None]
  - BLOOD PRESSURE DECREASED [None]
  - BUNDLE BRANCH BLOCK RIGHT [None]
  - CONVULSION [None]
  - CYANOSIS [None]
  - DYSPNOEA [None]
  - FACE OEDEMA [None]
  - GENERALISED ERYTHEMA [None]
  - LIP OEDEMA [None]
  - LOSS OF CONSCIOUSNESS [None]
  - VOMITING [None]
